FAERS Safety Report 8413913-0 (Version None)
Quarter: 2012Q2

REPORT INFORMATION
  Report Type: 
  Country: None (occurrence: None)
  Receive Date: 20120605
  Receipt Date: 20120526
  Transmission Date: 20120825
  Serious: Yes (Other)
  Sender: FDA-Public Use
  Company Number: US-ABBOTT-12P-163-0940381-00

PATIENT
  Age: 50 Year
  Sex: Female

DRUGS (11)
  1. NAPROXEN [Concomitant]
     Indication: HEADACHE
  2. LAMOTRIGINE [Concomitant]
     Indication: CONVULSION
  3. BELLADONNA AND PHENOBARBITAL [Concomitant]
     Indication: PRODUCT USED FOR UNKNOWN INDICATION
     Dosage: 4 TIMES A DAY AS NEEDED
  4. BALAZID [Concomitant]
     Indication: WEIGHT
  5. TOPAMAX [Concomitant]
     Indication: CONVULSION
  6. COLESTIPOL HYDROCHLORIDE [Concomitant]
     Indication: WEIGHT
     Dosage: 4 PER DAY
  7. XANAX [Concomitant]
     Indication: ANXIETY
     Dosage: GO TO PILL DAILY
  8. PAXIL [Concomitant]
     Indication: DEPRESSION
  9. STEROIDS [Concomitant]
     Indication: PRODUCT USED FOR UNKNOWN INDICATION
  10. HUMIRA [Suspect]
     Indication: CROHN'S DISEASE
     Dosage: 160 MG LOADING DOSE
     Dates: start: 20120522
  11. ENTOCORT EC [Concomitant]
     Indication: PRODUCT USED FOR UNKNOWN INDICATION
     Dosage: 3 CAPSULES DAILY

REACTIONS (5)
  - CHILLS [None]
  - CONVULSION [None]
  - FEELING HOT [None]
  - VOMITING [None]
  - MYALGIA [None]
